FAERS Safety Report 17200447 (Version 1)
Quarter: 2019Q4

REPORT INFORMATION
  Report Type: Report from Study
  Country: None (occurrence: US)
  Receive Date: 20191226
  Receipt Date: 20191226
  Transmission Date: 20200122
  Serious: Yes (Other)
  Sender: FDA-Public Use
  Company Number: US-ABBVIE-19K-163-2981504-00

PATIENT
  Sex: Female
  Weight: 77.18 kg

DRUGS (1)
  1. HUMIRA [Suspect]
     Active Substance: ADALIMUMAB
     Indication: PSORIASIS
     Route: 058
     Dates: start: 2019

REACTIONS (7)
  - Thyroid mass [Not Recovered/Not Resolved]
  - Vulvovaginal dryness [Unknown]
  - Arthritis [Unknown]
  - Neoplasm malignant [Unknown]
  - Dry skin [Unknown]
  - Vulvovaginal pruritus [Unknown]
  - Pruritus [Unknown]

NARRATIVE: CASE EVENT DATE: 2019
